FAERS Safety Report 9151563 (Version 1)
Quarter: 2013Q1

REPORT INFORMATION
  Report Type: Spontaneous
  Country: US (occurrence: US)
  Receive Date: 20130308
  Receipt Date: 20130308
  Transmission Date: 20140127
  Serious: Yes (Other)
  Sender: FDA-Public Use
  Company Number: US-AMGEN-USASP2013013484

PATIENT
  Age: 88 Year
  Sex: Female

DRUGS (4)
  1. XGEVA [Suspect]
     Indication: METASTATIC MALIGNANT MELANOMA
     Dosage: UNK UNK, Q4WK
  2. VITAMIN B-12 [Concomitant]
     Dosage: EVERY 4 TO 6 WEEKS
  3. LORTAB                             /00607101/ [Concomitant]
  4. FENTANYL [Concomitant]
     Dosage: 75 MUG, UNK

REACTIONS (6)
  - Neoplasm malignant [Unknown]
  - Haematoma [Unknown]
  - Pain [Unknown]
  - Back pain [Unknown]
  - Bronchitis [Unknown]
  - Breast pain [Unknown]
